FAERS Safety Report 24133429 (Version 1)
Quarter: 2024Q3

REPORT INFORMATION
  Report Type: Spontaneous
  Country: US (occurrence: None)
  Receive Date: 20240724
  Receipt Date: 20240724
  Transmission Date: 20241017
  Serious: No
  Sender: Public
  Company Number: None

PATIENT
  Age: 59 Year
  Sex: Male

DRUGS (1)
  1. SKYRIZI [Suspect]
     Active Substance: RISANKIZUMAB-RZAA
     Indication: Psoriasis
     Dosage: INJECTE 150MG (2 SYRINGES) SUBCUTANEOUSLY   AT WEEK 0 AND  WEEK 4 AS DIRECTED ?
     Route: 058
     Dates: start: 202203

REACTIONS (1)
  - Ear infection [None]
